FAERS Safety Report 19259309 (Version 1)
Quarter: 2021Q2

REPORT INFORMATION
  Report Type: Spontaneous
  Country: SE (occurrence: SE)
  Receive Date: 20210514
  Receipt Date: 20210514
  Transmission Date: 20210717
  Serious: Yes (Hospitalization, Disabling, Other)
  Sender: FDA-Public Use
  Company Number: SE-BAYER-2021-136894

PATIENT
  Age: 24 Year
  Sex: Female
  Weight: 80 kg

DRUGS (1)
  1. KYLEENA [Suspect]
     Active Substance: LEVONORGESTREL
     Indication: CONTRACEPTION
     Dosage: 17.5 ?G PER DAY,CONTINUOUSLY
     Route: 015
     Dates: start: 20181020, end: 20201016

REACTIONS (10)
  - Libido decreased [Recovered/Resolved with Sequelae]
  - Vulvovaginal dryness [Recovered/Resolved]
  - Depressed mood [Recovered/Resolved with Sequelae]
  - Inadequate lubrication [Recovered/Resolved with Sequelae]
  - Fatigue [Recovered/Resolved]
  - Intermenstrual bleeding [Recovered/Resolved]
  - Ovarian cyst [Not Recovered/Not Resolved]
  - Migraine [Recovered/Resolved]
  - Dyspareunia [Recovered/Resolved with Sequelae]
  - Hypertrichosis [Recovered/Resolved with Sequelae]

NARRATIVE: CASE EVENT DATE: 20181020
